FAERS Safety Report 24079212 (Version 1)
Quarter: 2024Q3

REPORT INFORMATION
  Report Type: Spontaneous
  Country: EG (occurrence: EG)
  Receive Date: 20240711
  Receipt Date: 20240711
  Transmission Date: 20241016
  Serious: Yes (Other)
  Sender: PFIZER
  Company Number: EG-PFIZER INC-PV202400089850

PATIENT
  Age: 22 Year
  Sex: Male

DRUGS (2)
  1. ZYVOX [Suspect]
     Active Substance: LINEZOLID
     Indication: Skin infection
     Dosage: 600 MG, 2X/DAY
     Route: 042
  2. CYTARABINE [Suspect]
     Active Substance: CYTARABINE
     Indication: Leukaemia
     Dosage: 200 MG, 1X/DAY
     Route: 042

REACTIONS (2)
  - Rash [Recovered/Resolved]
  - Erythema [Recovered/Resolved]
